FAERS Safety Report 24176426 (Version 1)
Quarter: 2024Q3

REPORT INFORMATION
  Report Type: Spontaneous
  Country: US (occurrence: US)
  Receive Date: 20240806
  Receipt Date: 20240806
  Transmission Date: 20241016
  Serious: Yes (Other)
  Sender: EMD SERONO INC
  Company Number: US-Merck Healthcare KGaA-2024041307

PATIENT
  Sex: Female

DRUGS (2)
  1. CLADRIBINE [Suspect]
     Active Substance: CLADRIBINE
     Indication: Multiple sclerosis
     Dosage: FIRST CYCLE OF YEAR ONE
  2. CLADRIBINE [Suspect]
     Active Substance: CLADRIBINE
     Dosage: SECOND CYCLE OF YEAR ONE

REACTIONS (1)
  - Lymphopenia [Unknown]
